FAERS Safety Report 8888553 (Version 3)
Quarter: 2015Q3

REPORT INFORMATION
  Report Type: Spontaneous
  Country: US (occurrence: US)
  Receive Date: 20121106
  Receipt Date: 20150714
  Transmission Date: 20151125
  Serious: Yes (Hospitalization)
  Sender: FDA-Public Use
  Company Number: US-ASTRAZENECA-2012SE82088

PATIENT
  Age: 69 Year
  Sex: Male

DRUGS (4)
  1. CRESTOR [Suspect]
     Active Substance: ROSUVASTATIN CALCIUM
     Route: 048
  2. BLOOD THINNER [Concomitant]
     Active Substance: UNSPECIFIED INGREDIENT
  3. DIABETES MEDICINES [Concomitant]
     Indication: DIABETES MELLITUS
  4. CRESTOR [Suspect]
     Active Substance: ROSUVASTATIN CALCIUM
     Route: 048
     Dates: start: 2014, end: 20150618

REACTIONS (4)
  - Drug dose omission [Unknown]
  - Peripheral ischaemia [Recovering/Resolving]
  - Diabetes mellitus [Unknown]
  - Intentional product misuse [Unknown]

NARRATIVE: CASE EVENT DATE: 2014
